FAERS Safety Report 6052625-8 (Version None)
Quarter: 2009Q1

REPORT INFORMATION
  Report Type: 
  Country: None (occurrence: None)
  Receive Date: 20090127
  Receipt Date: 20090119
  Transmission Date: 20090719
  Serious: Yes (Hospitalization)
  Sender: FDA-Public Use
  Company Number: JP-WYE-H07642209

PATIENT
  Sex: Female

DRUGS (7)
  1. HYPEN [Suspect]
     Indication: RHEUMATOID ARTHRITIS
     Route: 048
     Dates: start: 20081126, end: 20081210
  2. PREDNISOLONE [Concomitant]
     Dosage: UNKNOWN
     Route: 048
  3. ALFACALCIDOL [Concomitant]
     Dosage: UNKNOWN
     Route: 048
  4. POTASSIUM CITRATE/SODIUM CITRATE [Concomitant]
     Dosage: UNKNOWN
     Route: 048
  5. ALENDRONATE SODIUM [Concomitant]
     Dosage: UNKNOWN
     Route: 048
  6. SALAZOSULFAPYRIDINE [Suspect]
     Route: 048
  7. FURSULTIAMINE [Concomitant]
     Dosage: UNKNOWN
     Route: 048

REACTIONS (1)
  - DRUG ERUPTION [None]
